FAERS Safety Report 4295938-2 (Version None)
Quarter: 2004Q1

REPORT INFORMATION
  Report Type: 
  Country: None (occurrence: None)
  Receive Date: 20040211
  Receipt Date: 20040121
  Transmission Date: 20041129
  Serious: Yes (Hospitalization)
  Sender: FDA-Public Use
  Company Number: F01200301445

PATIENT
  Age: 62 Year
  Sex: Female

DRUGS (5)
  1. (FONDAPARINUX SODIUM) - SOLUTION -UNIT DOSE : UNKNOWN [Suspect]
     Indication: ORTHOPEDIC PROCEDURE
     Dosage: 2.5 MG SUBCUTANEOUS
     Route: 058
     Dates: start: 20031105, end: 20031109
  2. (FONDAPARINUX SODIUM) - SOLUTION -UNIT DOSE : UNKNOWN [Suspect]
     Indication: SURGERY
     Dosage: 2.5 MG SUBCUTANEOUS
     Route: 058
     Dates: start: 20031105, end: 20031109
  3. CO-RENITEC (ENALAPRIL MALEATE / HYDROCHLOROTHIAZIDE) [Concomitant]
  4. ENALAPRIL MALEATE [Concomitant]
  5. AUGMENTIN [Concomitant]

REACTIONS (4)
  - BLISTER [None]
  - POST PROCEDURAL HAEMATOMA [None]
  - PROCEDURAL SITE REACTION [None]
  - WOUND NECROSIS [None]
